FAERS Safety Report 5099153-4 (Version None)
Quarter: 2006Q3

REPORT INFORMATION
  Report Type: 
  Country: None (occurrence: None)
  Receive Date: 20060731
  Receipt Date: 20050907
  Transmission Date: 20061208
  Serious: Yes (Other)
  Sender: FDA-Public Use
  Company Number: 217366

PATIENT
  Age: 62 Year
  Sex: Female

DRUGS (4)
  1. RITUXAN [Suspect]
     Indication: NON-HODGKIN'S LYMPHOMA
     Dosage: 668 MG, (SEE IMAGE)
     Dates: start: 20050825, end: 20050826
  2. ALLOPURINOL [Concomitant]
  3. TYLENOL (CAPLET) [Concomitant]
  4. BENADRYL [Concomitant]

REACTIONS (1)
  - HYPERSENSITIVITY [None]
